FAERS Safety Report 6818943-8 (Version None)
Quarter: 2010Q3

REPORT INFORMATION
  Report Type: 
  Country: None (occurrence: None)
  Receive Date: 20100707
  Receipt Date: 20100629
  Transmission Date: 20110219
  Serious: No
  Sender: FDA-Public Use
  Company Number: US-BIOGENIDEC-2010BI022060

PATIENT
  Age: 41 Year
  Sex: Female

DRUGS (1)
  1. AVONEX [Suspect]
     Indication: MULTIPLE SCLEROSIS
     Route: 030
     Dates: start: 20100514

REACTIONS (5)
  - DYSMENORRHOEA [None]
  - FLUID RETENTION [None]
  - JOINT SWELLING [None]
  - MENORRHAGIA [None]
  - METRORRHAGIA [None]
